FAERS Safety Report 7988591-5 (Version None)
Quarter: 2011Q4

REPORT INFORMATION
  Report Type: 
  Country: None (occurrence: None)
  Receive Date: 20111218
  Receipt Date: 20070809
  Transmission Date: 20120403
  Serious: Yes (Other)
  Sender: FDA-Public Use
  Company Number: PHHY2007MX011471

PATIENT
  Sex: Male

DRUGS (2)
  1. LAMISIL [Suspect]
     Indication: ONYCHOMYCOSIS
     Dosage: 250 MG, QD
     Route: 048
     Dates: end: 20070501
  2. LAMISIL [Suspect]
     Dosage: 250 MG, QD
     Route: 048
     Dates: start: 20070701

REACTIONS (3)
  - PYREXIA [None]
  - BRONCHOPNEUMONIA [None]
  - COUGH [None]
